FAERS Safety Report 7636294-9 (Version None)
Quarter: 2011Q3

REPORT INFORMATION
  Report Type: 
  Country: None (occurrence: None)
  Receive Date: 20110726
  Receipt Date: 20110701
  Transmission Date: 20111222
  Serious: Yes (Hospitalization)
  Sender: FDA-Public Use
  Company Number: US-GLAXOSMITHKLINE-A0809161A

PATIENT
  Age: 59 Year
  Sex: Male

DRUGS (11)
  1. PREVACID [Concomitant]
  2. LOPRESSOR [Concomitant]
  3. ZOCOR [Concomitant]
  4. FOLIC ACID [Concomitant]
  5. NITROGLYCERIN [Concomitant]
  6. PLAVIX [Concomitant]
  7. IMDUR [Concomitant]
  8. METOPROLOL TARTRATE [Concomitant]
  9. ASPIRIN [Concomitant]
  10. TRICOR [Concomitant]
  11. AVANDIA [Suspect]
     Indication: DIABETES MELLITUS
     Dosage: 4MG PER DAY
     Route: 048
     Dates: end: 20070101

REACTIONS (2)
  - MYOCARDIAL INFARCTION [None]
  - PAIN [None]
